FAERS Safety Report 26005968 (Version 1)
Quarter: 2025Q4

REPORT INFORMATION
  Report Type: Spontaneous
  Country: US (occurrence: None)
  Receive Date: 20251105
  Receipt Date: 20251105
  Transmission Date: 20260117
  Serious: Yes (Other)
  Sender: FDA-CTU
  Company Number: None

PATIENT
  Age: 84 Year
  Sex: Male

DRUGS (1)
  1. LENALIDOMIDE [Suspect]
     Active Substance: LENALIDOMIDE
     Indication: Plasma cell myeloma
     Dosage: 15MG DAILY X ORAL
     Route: 048
     Dates: start: 20240403, end: 20250919

REACTIONS (3)
  - Therapeutic response unexpected [None]
  - Weight increased [None]
  - Therapy cessation [None]

NARRATIVE: CASE EVENT DATE: 20251031
